FAERS Safety Report 11072485 (Version 2)
Quarter: 2015Q3

REPORT INFORMATION
  Report Type: Spontaneous
  Country: JP (occurrence: JP)
  Receive Date: 20150428
  Receipt Date: 20150707
  Transmission Date: 20151125
  Serious: Yes (Death, Other)
  Sender: FDA-Public Use
  Company Number: JP-MYLANLABS-2015M1014195

PATIENT

DRUGS (3)
  1. MIGLITOL. [Suspect]
     Active Substance: MIGLITOL
     Dosage: 150 MG/DAY
     Route: 065
  2. CARBOPLATIN INJECTION 50 MG ^NK^ [Suspect]
     Active Substance: CARBOPLATIN
     Indication: LUNG ADENOCARCINOMA STAGE III
     Dosage: AREA UNDER THE CURVE FROM PHARMACOKINETIC MEASUREMENT WAS 5
     Route: 065
  3. PEMETREXED [Suspect]
     Active Substance: PEMETREXED
     Indication: LUNG ADENOCARCINOMA STAGE III
     Dosage: 500 MG/M 2
     Route: 065

REACTIONS (4)
  - Portal venous gas [Recovering/Resolving]
  - Gastrointestinal necrosis [Not Recovered/Not Resolved]
  - Sepsis [Fatal]
  - Multi-organ failure [Fatal]
